FAERS Safety Report 17790280 (Version 2)
Quarter: 2020Q2

REPORT INFORMATION
  Report Type: Spontaneous
  Country: US (occurrence: US)
  Receive Date: 20200515
  Receipt Date: 20200608
  Transmission Date: 20200714
  Serious: Yes (Other)
  Sender: FDA-Public Use
  Company Number: US-BEH-2020117317

PATIENT
  Age: 37 Year
  Sex: Male

DRUGS (6)
  1. IDELVION [Suspect]
     Active Substance: COAGULATION FACTOR IX RECOMBINANT HUMAN
     Indication: PROPHYLAXIS
     Dosage: 4300 INTERNATIONAL UNIT (3870-4730), PRN
     Route: 042
     Dates: start: 20200310
  2. IDELVION [Suspect]
     Active Substance: COAGULATION FACTOR IX RECOMBINANT HUMAN
     Indication: PROPHYLAXIS
     Dosage: 4300 INTERNATIONAL UNIT (3870-4730), PRN
     Route: 042
     Dates: start: 20200310
  3. IDELVION [Suspect]
     Active Substance: COAGULATION FACTOR IX RECOMBINANT HUMAN
     Indication: FACTOR IX DEFICIENCY
     Dosage: 4300 INTERNATIONAL UNIT (3870-4730), QW
     Route: 042
     Dates: start: 20200310
  4. IDELVION [Suspect]
     Active Substance: COAGULATION FACTOR IX RECOMBINANT HUMAN
     Indication: FACTOR IX DEFICIENCY
     Dosage: 4300 INTERNATIONAL UNIT (3870-4730), QW
     Route: 042
     Dates: start: 20200310
  5. IDELVION [Suspect]
     Active Substance: COAGULATION FACTOR IX RECOMBINANT HUMAN
     Indication: HAEMORRHAGE
     Dosage: 4300 INTERNATIONAL UNIT (3870-4730), QW
     Route: 042
     Dates: start: 20200309
  6. IDELVION [Suspect]
     Active Substance: COAGULATION FACTOR IX RECOMBINANT HUMAN
     Indication: HAEMORRHAGE
     Dosage: 4300 INTERNATIONAL UNIT (3870-4730), QW
     Route: 042
     Dates: start: 20200309

REACTIONS (2)
  - Haemarthrosis [Recovered/Resolved]
  - Haemarthrosis [Recovered/Resolved]

NARRATIVE: CASE EVENT DATE: 20200424
